FAERS Safety Report 6570168-X (Version None)
Quarter: 2010Q1

REPORT INFORMATION
  Report Type: 
  Country: None (occurrence: None)
  Receive Date: 20100204
  Receipt Date: 20100126
  Transmission Date: 20100710
  Serious: Yes (Death)
  Sender: FDA-Public Use
  Company Number: US-PFIZER INC-2010001169

PATIENT
  Sex: Male
  Weight: 68.481 kg

DRUGS (1)
  1. VFEND [Suspect]
     Indication: ASPERGILLOSIS
     Dosage: 700 MG, 2X/DAY
     Dates: start: 20090701, end: 20091201

REACTIONS (2)
  - PNEUMONIA [None]
  - RESPIRATORY FAILURE [None]
